FAERS Safety Report 20493193 (Version 1)
Quarter: 2022Q1

REPORT INFORMATION
  Report Type: Spontaneous
  Country: FR (occurrence: FR)
  Receive Date: 20220220
  Receipt Date: 20220220
  Transmission Date: 20220423
  Serious: Yes (Hospitalization)
  Sender: FDA-Public Use
  Company Number: None

PATIENT
  Age: 72 Year
  Sex: Male
  Weight: 49 kg

DRUGS (11)
  1. PEMETREXED [Suspect]
     Active Substance: PEMETREXED
     Indication: Lung adenocarcinoma
     Dosage: 590MG
     Route: 041
     Dates: start: 20210811, end: 20211119
  2. DOXYCYCLINE [Suspect]
     Active Substance: DOXYCYCLINE
     Indication: Abscess
     Dosage: 100MG
     Route: 048
     Dates: start: 202110, end: 20211216
  3. PEMBROLIZUMAB [Suspect]
     Active Substance: PEMBROLIZUMAB
     Indication: Lung adenocarcinoma
     Dosage: 200MG
     Route: 041
     Dates: start: 20210811, end: 20211119
  4. TAMSULOSIN HYDROCHLORIDE [Concomitant]
     Active Substance: TAMSULOSIN HYDROCHLORIDE
     Dosage: 0.4MG,THERAPY START DATE:ASKU
     Route: 048
  5. ONDANSETRON [Concomitant]
     Active Substance: ONDANSETRON
     Dosage: 16MG,THERAPY START DATE :ASKU
     Route: 048
  6. METOCLOPRAMIDE HYDROCHLORIDE [Concomitant]
     Active Substance: METOCLOPRAMIDE HYDROCHLORIDE
     Dosage: 30MG,THERAPY START DATE :ASKU
     Route: 048
  7. CARBOPLATIN [Concomitant]
     Active Substance: CARBOPLATIN
     Indication: Lung adenocarcinoma
     Dosage: 350MG
     Route: 041
     Dates: start: 20210811, end: 20210928
  8. OXYCODONE [Concomitant]
     Active Substance: OXYCODONE
     Dosage: 20MG,THERAPY START DATE :ASKU
     Route: 048
     Dates: end: 20211223
  9. FOLIC ACID [Concomitant]
     Active Substance: FOLIC ACID
     Dosage: 0.4MG,THERAPY START DATE :ASKU
     Route: 048
  10. ACETAMINOPHEN [Concomitant]
     Active Substance: ACETAMINOPHEN
     Dosage: 3000MG,THERAPY START DATE :ASKU
     Route: 048
  11. LANSOPRAZOLE [Concomitant]
     Active Substance: LANSOPRAZOLE
     Dosage: 30MG,THERAPY START DATE :ASKU
     Route: 048

REACTIONS (2)
  - Acute kidney injury [Recovered/Resolved]
  - Interstitial lung disease [Recovering/Resolving]

NARRATIVE: CASE EVENT DATE: 20211119
